FAERS Safety Report 25066940 (Version 2)
Quarter: 2025Q1

REPORT INFORMATION
  Report Type: Spontaneous
  Country: CN (occurrence: CN)
  Receive Date: 20250312
  Receipt Date: 20250326
  Transmission Date: 20250408
  Serious: No
  Sender: ARGENX BVBA
  Company Number: CN-ARGENX-2025-ARGX-CN002942

PATIENT

DRUGS (6)
  1. EFGARTIGIMOD ALFA [Interacting]
     Active Substance: EFGARTIGIMOD ALFA
     Indication: Myasthenia gravis crisis
     Route: 042
     Dates: start: 20231103, end: 20231103
  2. EFGARTIGIMOD ALFA [Interacting]
     Active Substance: EFGARTIGIMOD ALFA
     Route: 042
     Dates: start: 20231107, end: 20231107
  3. PREDNISONE [Interacting]
     Active Substance: PREDNISONE
     Indication: Product used for unknown indication
     Route: 065
  4. METHYLPREDNISOLONE [Interacting]
     Active Substance: METHYLPREDNISOLONE
     Indication: Product used for unknown indication
     Route: 042
  5. PYRIDOSTIGMINE [Interacting]
     Active Substance: PYRIDOSTIGMINE
     Indication: Product used for unknown indication
     Dosage: 60 MG, TID
     Route: 065
  6. MYCOPHENOLIC ACID [Suspect]
     Active Substance: MYCOPHENOLIC ACID
     Indication: Product used for unknown indication
     Dosage: 250 MG, BID
     Route: 065

REACTIONS (6)
  - Leukocytosis [Unknown]
  - Aspartate aminotransferase increased [Unknown]
  - Hyperalbuminaemia [Unknown]
  - Blood urea increased [Unknown]
  - Drug interaction [Unknown]
  - Off label use [Unknown]

NARRATIVE: CASE EVENT DATE: 20231103
